APPROVED DRUG PRODUCT: BENZONATATE
Active Ingredient: BENZONATATE
Strength: 200MG
Dosage Form/Route: CAPSULE;ORAL
Application: A040597 | Product #002 | TE Code: AA
Applicant: ZYDUS PHARMACEUTICALS USA INC
Approved: Jun 8, 2007 | RLD: No | RS: No | Type: RX